FAERS Safety Report 15988998 (Version 2)
Quarter: 2019Q1

REPORT INFORMATION
  Report Type: Other
  Country: None (occurrence: DE)
  Receive Date: 20190221
  Receipt Date: 20190228
  Transmission Date: 20190418
  Serious: Yes (Death, Life-Threatening, Other)
  Sender: FDA-Public Use
  Company Number: DE-BAUSCH-BL-2019-005182

PATIENT

DRUGS (6)
  1. DEXAMETHASONE. [Suspect]
     Active Substance: DEXAMETHASONE
     Indication: PLASMA CELL MYELOMA
     Dosage: DOSING 3X8 (MG ABS.), DAYS 1-10 OF EVERY CYCLE
     Route: 065
  2. CARMUSTINE. [Suspect]
     Active Substance: CARMUSTINE
     Indication: PLASMA CELL MYELOMA
     Dosage: ON DAY 2 OF EVERY CYCLE, 30-60 MG/M2
     Route: 065
  3. MELPHALAN. [Suspect]
     Active Substance: MELPHALAN
     Indication: PLASMA CELL MYELOMA
     Dosage: ON DAY 3 OF EVERY CYCLE, 10-20 MG/M2
     Route: 065
  4. GRANULOCYTE COLONY STIMULATING FACTOR [Concomitant]
     Active Substance: GRANULOCYTE COLONY-STIMULATING FACTOR NOS
     Indication: PROPHYLAXIS
     Dosage: ON DAY 8 OF EACH CYCLE
  5. CYTARABINE. [Suspect]
     Active Substance: CYTARABINE
     Indication: PLASMA CELL MYELOMA
     Dosage: ON DAYS 4-7, 2X 50-100 MG/M2
     Route: 065
  6. ETOPOSIDE. [Suspect]
     Active Substance: ETOPOSIDE
     Indication: PLASMA CELL MYELOMA
     Dosage: ON DAYS 4-7 EVERY CYCLE, 38-75 MG/M2
     Route: 065

REACTIONS (13)
  - Intestinal perforation [Fatal]
  - Stomatitis [Unknown]
  - Gastrointestinal perforation [Unknown]
  - Thrombocytopenia [Unknown]
  - Neutropenia [Unknown]
  - Febrile neutropenia [Unknown]
  - Multiple organ dysfunction syndrome [Fatal]
  - Therapy partial responder [Unknown]
  - Sepsis [Fatal]
  - Encephalopathy [Unknown]
  - Constipation [Unknown]
  - Arrhythmia [Unknown]
  - Haemorrhage intracranial [Unknown]
